FAERS Safety Report 6122860-9 (Version None)
Quarter: 2009Q1

REPORT INFORMATION
  Report Type: 
  Country: None (occurrence: None)
  Receive Date: 20090318
  Receipt Date: 20090311
  Transmission Date: 20090719
  Serious: Yes (Hospitalization)
  Sender: FDA-Public Use
  Company Number: B0564449A

PATIENT
  Age: 46 Year
  Sex: Female
  Weight: 84 kg

DRUGS (17)
  1. DEROXAT [Suspect]
     Indication: DRUG USE FOR UNKNOWN INDICATION
     Route: 048
     Dates: start: 20071001
  2. DECAPEPTYL [Suspect]
     Indication: DRUG USE FOR UNKNOWN INDICATION
     Route: 030
     Dates: start: 20060101
  3. ABUFENE [Suspect]
     Indication: DRUG USE FOR UNKNOWN INDICATION
     Route: 048
     Dates: start: 20060101
  4. CELESTENE [Suspect]
     Indication: DRUG USE FOR UNKNOWN INDICATION
     Route: 055
     Dates: start: 20090121, end: 20090129
  5. NETROMYCIN [Suspect]
     Indication: DRUG USE FOR UNKNOWN INDICATION
     Route: 055
     Dates: start: 20090121, end: 20090121
  6. SURBRONC [Suspect]
     Indication: DRUG USE FOR UNKNOWN INDICATION
     Route: 055
     Dates: start: 20090121, end: 20090121
  7. LEXOMIL [Concomitant]
     Route: 065
     Dates: end: 20090101
  8. PARACETAMOL [Concomitant]
     Indication: BRONCHITIS
     Route: 065
     Dates: start: 20081215, end: 20081221
  9. VITASCORBOL [Concomitant]
     Indication: BRONCHITIS
     Route: 065
     Dates: start: 20081215, end: 20081221
  10. AMOXICILLIN [Concomitant]
     Indication: BRONCHITIS
     Route: 065
     Dates: start: 20081215, end: 20081221
  11. RHINADVIL [Concomitant]
     Indication: BRONCHITIS
     Route: 065
     Dates: start: 20081215, end: 20081221
  12. DERINOX [Concomitant]
     Route: 065
     Dates: start: 20081230, end: 20081231
  13. TOPLEXIL [Concomitant]
     Route: 065
     Dates: start: 20081230, end: 20090106
  14. PYOSTACINE [Concomitant]
     Route: 065
     Dates: start: 20081230, end: 20090108
  15. CARBOCISTEINE [Concomitant]
     Route: 065
     Dates: start: 20081230
  16. GOMENOL [Concomitant]
     Route: 055
     Dates: start: 20090121, end: 20090129
  17. RADIOTHERAPY [Concomitant]

REACTIONS (3)
  - CELL DEATH [None]
  - MEGAKARYOCYTES DECREASED [None]
  - THROMBOCYTOPENIA [None]
